FAERS Safety Report 22916251 (Version 2)
Quarter: 2023Q4

REPORT INFORMATION
  Report Type: Report from Study
  Country: US (occurrence: US)
  Receive Date: 20230907
  Receipt Date: 20231002
  Transmission Date: 20240110
  Serious: Yes (Other)
  Sender: FDA-Public Use
  Company Number: US-BAYER-2023A115061

PATIENT
  Age: 46 Year
  Sex: Female

DRUGS (4)
  1. STIVARGA [Suspect]
     Active Substance: REGORAFENIB
     Indication: Colon cancer
     Dosage: 80 MG, QD FOR 1 WEEK
     Route: 048
     Dates: start: 20230806, end: 20230812
  2. STIVARGA [Suspect]
     Active Substance: REGORAFENIB
     Indication: Colon cancer
     Dosage: 120 MG, QD FOR 2 WEEK
     Route: 048
     Dates: start: 20230813, end: 20230819
  3. STIVARGA [Suspect]
     Active Substance: REGORAFENIB
     Indication: Colon cancer
     Dosage: 160 MG, QD FOR WEEK 3RD
     Dates: start: 20230820, end: 20230824
  4. STIVARGA [Suspect]
     Active Substance: REGORAFENIB
     Indication: Colon cancer
     Dosage: 80 MG, QD

REACTIONS (11)
  - Cerebrovascular accident [Not Recovered/Not Resolved]
  - Blood pressure increased [None]
  - Eating disorder [None]
  - Neck pain [None]
  - Pain [None]
  - Diarrhoea [None]
  - Fatigue [None]
  - Headache [None]
  - Off label use [None]
  - Palmar-plantar erythrodysaesthesia syndrome [Not Recovered/Not Resolved]
  - Hypertension [Not Recovered/Not Resolved]

NARRATIVE: CASE EVENT DATE: 20230806
